FAERS Safety Report 20502771 (Version 1)
Quarter: 2022Q1

REPORT INFORMATION
  Report Type: Spontaneous
  Country: US (occurrence: None)
  Receive Date: 20220222
  Receipt Date: 20220222
  Transmission Date: 20220424
  Serious: Yes (Hospitalization)
  Sender: FDA-Public Use
  Company Number: None

PATIENT
  Sex: Female
  Weight: 75.1 kg

DRUGS (7)
  1. CYCLOPHOSPHAMIDE [Suspect]
     Active Substance: CYCLOPHOSPHAMIDE
  2. CYTARABINE [Concomitant]
  3. DOXORUBICIN HYDROCHLORIDE METHOTREXATE [Concomitant]
  4. THIOGUANINE (6-tg) [Concomitant]
  5. DEXAMETHSONE [Concomitant]
  6. METHOTREXATE [Concomitant]
     Active Substance: METHOTREXATE
  7. RITUXIMAB (MOAB C2B8 ANTI CD20, CHIMERIC) [Concomitant]

REACTIONS (2)
  - Epistaxis [None]
  - Haematemesis [None]

NARRATIVE: CASE EVENT DATE: 20220214
